FAERS Safety Report 22186364 (Version 1)
Quarter: 2023Q2

REPORT INFORMATION
  Report Type: Spontaneous
  Country: US (occurrence: None)
  Receive Date: 20230406
  Receipt Date: 20230406
  Transmission Date: 20230722
  Serious: Yes (Hospitalization)
  Sender: FDA-Public Use
  Company Number: None

PATIENT
  Age: 64 Year
  Sex: Female

DRUGS (12)
  1. MYCOPHENOLIC ACID [Suspect]
     Active Substance: MYCOPHENOLIC ACID
     Indication: Heart transplant
     Route: 048
     Dates: start: 20210324
  2. ALBUTEROL AER HFA [Concomitant]
  3. AMLODIPINE TAB [Concomitant]
  4. ASPIRIN TAB [Concomitant]
  5. CALCIUM [Concomitant]
     Active Substance: CALCIUM
  6. ERGOCALCIFER DRO [Concomitant]
  7. FERROUS SULF TAB [Concomitant]
  8. GENFRAF [Concomitant]
  9. MAG OXIDE TAB [Concomitant]
  10. ROSUVASTATIN [Concomitant]
     Active Substance: ROSUVASTATIN
  11. TYLENOL CHLD SUS [Concomitant]
  12. VITAMIN D CAP [Concomitant]

REACTIONS (1)
  - Renal failure [None]

NARRATIVE: CASE EVENT DATE: 20230301
